FAERS Safety Report 18846119 (Version 1)
Quarter: 2021Q1

REPORT INFORMATION
  Report Type: Spontaneous
  Country: US (occurrence: US)
  Receive Date: 20210204
  Receipt Date: 20210204
  Transmission Date: 20210419
  Serious: Yes (Life-Threatening, Hospitalization, Other)
  Sender: FDA-Public Use
  Company Number: US-TEVA-2021-US-1874777

PATIENT
  Age: 44 Year
  Sex: Male

DRUGS (30)
  1. HYDROCORTISONE. [Suspect]
     Active Substance: HYDROCORTISONE
     Indication: ACUTE GRAFT VERSUS HOST DISEASE
     Route: 065
  2. MYCOPHENOLATE MOFETIL. [Suspect]
     Active Substance: MYCOPHENOLATE MOFETIL
     Indication: IMMUNOSUPPRESSANT DRUG THERAPY
     Route: 065
  3. ALPHA?1 ANTITRYPSIN [Concomitant]
     Active Substance: .ALPHA.1-PROTEINASE INHIBITOR HUMAN
     Indication: ACUTE GRAFT VERSUS HOST DISEASE
     Dosage: ADMINISTERED FROM DAYS 50 THROUGH 64
     Route: 065
  4. THYMOGLOBULIN [Concomitant]
     Active Substance: LAPINE T-LYMPHOCYTE IMMUNE GLOBULIN
     Indication: ACUTE GRAFT VERSUS HOST DISEASE
     Dosage: ADMINISTERED BETWEEN DAYS 63 AND 75
     Route: 065
  5. OCTREOTIDE. [Concomitant]
     Active Substance: OCTREOTIDE
     Indication: DIARRHOEA
     Route: 065
  6. PREDNISONE. [Suspect]
     Active Substance: PREDNISONE
     Dosage: 2 MG/KG DAILY; DOSES INCREASED STEP?WISE TO 2 MG/KG PER DAY
     Route: 065
  7. TACROLIMUS. [Suspect]
     Active Substance: TACROLIMUS
     Indication: ACUTE GRAFT VERSUS HOST DISEASE
     Route: 065
  8. LITHIUM CARBONATE. [Suspect]
     Active Substance: LITHIUM CARBONATE
     Dosage: DOSES ADJUSTED TO MAINTAIN TROUGH SERUM CONCENTRATIONS AT 0.5 TO 0.8 MEQ/
     Route: 065
  9. ACYCLOVIR. [Concomitant]
     Active Substance: ACYCLOVIR
     Indication: PROPHYLAXIS
     Route: 065
  10. DAPSONE. [Concomitant]
     Active Substance: DAPSONE
     Indication: PROPHYLAXIS
     Route: 065
  11. VANCOMYCIN [Concomitant]
     Active Substance: VANCOMYCIN
     Indication: LARGE INTESTINE PERFORATION
     Route: 042
  12. BUDESONIDE. [Suspect]
     Active Substance: BUDESONIDE
     Indication: IMMUNOSUPPRESSANT DRUG THERAPY
  13. PREDNISONE. [Suspect]
     Active Substance: PREDNISONE
     Indication: IMMUNOSUPPRESSANT DRUG THERAPY
     Dosage: 2 MG/KG DAILY; ON DAY 41
     Route: 065
  14. PREDNISONE. [Suspect]
     Active Substance: PREDNISONE
     Dosage: DOSE: TAPERED BY 0.2 MG/KG EVERY 3 DAYS BETWEEN DAYS 56 AND 61
     Route: 065
  15. PREDNISONE. [Suspect]
     Active Substance: PREDNISONE
     Dosage: 1 MG/KG DAILY; ON DAY 45
     Route: 065
  16. PREDNISONE. [Suspect]
     Active Substance: PREDNISONE
     Dosage: 2 MG/KG DAILY; ON DAY 48
     Route: 065
  17. PREDNISONE. [Suspect]
     Active Substance: PREDNISONE
     Dosage: 7.5 MILLIGRAM DAILY; AFTER 17 MONTHS OF HCT
     Route: 065
  18. PREDNISONE. [Suspect]
     Active Substance: PREDNISONE
     Dosage: DOSE: 30MG AND 25MG ON ALTERNATE DAYS AFTER DISCHARGE
     Route: 065
  19. PREDNISONE. [Suspect]
     Active Substance: PREDNISONE
     Dosage: 8 MILLIGRAM DAILY;
     Route: 065
  20. PREDNISONE. [Suspect]
     Active Substance: PREDNISONE
     Indication: ACUTE GRAFT VERSUS HOST DISEASE
     Dosage: .5 MG/KG DAILY; STARTED ON DAY 32
     Route: 065
  21. PREDNISONE. [Suspect]
     Active Substance: PREDNISONE
     Dosage: 1.5 MG/KG DAILY; ON DAY 63
     Route: 065
  22. TACROLIMUS. [Suspect]
     Active Substance: TACROLIMUS
     Indication: IMMUNOSUPPRESSANT DRUG THERAPY
  23. BECLOMETHASONE [Suspect]
     Active Substance: BECLOMETHASONE
     Indication: IMMUNOSUPPRESSANT DRUG THERAPY
  24. HYDROCORTISONE. [Suspect]
     Active Substance: HYDROCORTISONE
     Indication: IMMUNOSUPPRESSANT DRUG THERAPY
  25. PREDNISONE. [Suspect]
     Active Substance: PREDNISONE
     Dosage: 1 MG/KG DAILY; ON DAY 65
     Route: 065
  26. TINCTURE OF OPIUM [Concomitant]
     Active Substance: OPIUM
     Indication: DIARRHOEA
     Dosage: FORMULATION: TINCTURE
     Route: 065
  27. BUDESONIDE. [Suspect]
     Active Substance: BUDESONIDE
     Indication: ACUTE GRAFT VERSUS HOST DISEASE
     Route: 065
  28. BECLOMETHASONE [Suspect]
     Active Substance: BECLOMETHASONE
     Indication: ACUTE GRAFT VERSUS HOST DISEASE
     Dosage: STARTED ON DAY 32
     Route: 048
  29. LITHIUM CARBONATE. [Suspect]
     Active Substance: LITHIUM CARBONATE
     Indication: ACUTE GRAFT VERSUS HOST DISEASE
     Dosage: ADMINISTERED BETWEEN DAYS 63 THROUGH 80
     Route: 065
  30. SIROLIMUS. [Suspect]
     Active Substance: SIROLIMUS
     Indication: GRAFT VERSUS HOST DISEASE
     Route: 065

REACTIONS (7)
  - Adenovirus infection [Unknown]
  - Off label use [Unknown]
  - Therapy non-responder [Unknown]
  - Thrombotic microangiopathy [Unknown]
  - Clostridium difficile infection [Unknown]
  - Large intestine perforation [Recovering/Resolving]
  - Necrotising colitis [Unknown]
